FAERS Safety Report 9766428 (Version 2)
Quarter: 2013Q4

REPORT INFORMATION
  Report Type: Spontaneous
  Country: CH (occurrence: CH)
  Receive Date: 20131217
  Receipt Date: 20131217
  Transmission Date: 20140711
  Serious: Yes (Other)
  Sender: FDA-Public Use
  Company Number: CH-TEVA-437195ISR

PATIENT
  Age: 59 Year
  Sex: Female
  Weight: 65 kg

DRUGS (6)
  1. CLARITHROMYCIN [Suspect]
     Indication: BRONCHITIS
     Dosage: 500 MILLIGRAM DAILY;
     Route: 048
     Dates: start: 20130916, end: 20130922
  2. SEROPRAM 20 MG [Concomitant]
     Dosage: 20 MILLIGRAM DAILY;
  3. ASPIRIN CARDIO 100 MG [Concomitant]
     Dosage: 100 MILLIGRAM DAILY;
  4. ESTROFEM 2 MG [Concomitant]
     Dosage: 2 MILLIGRAM DAILY;
  5. XANAX 2 MG [Concomitant]
     Dosage: 2 MILLIGRAM DAILY;
  6. METO ZEROK 25 MG [Concomitant]
     Dosage: 25 MILLIGRAM DAILY;

REACTIONS (3)
  - Ageusia [Recovered/Resolved]
  - Atrophic glossitis [Recovered/Resolved]
  - Anosmia [Unknown]
